FAERS Safety Report 6193296-X (Version None)
Quarter: 2009Q2

REPORT INFORMATION
  Report Type: 
  Country: None (occurrence: None)
  Receive Date: 20090514
  Receipt Date: 20090508
  Transmission Date: 20091009
  Serious: Yes (Other)
  Sender: FDA-Public Use
  Company Number: SPV1-2009-00917

PATIENT
  Age: 11 Year
  Sex: Male
  Weight: 39.5 kg

DRUGS (4)
  1. VYVANSE [Suspect]
     Indication: ATTENTION DEFICIT/HYPERACTIVITY DISORDER
     Dosage: 20 MG, 1X/DAY;QD, ORAL
     Route: 048
     Dates: start: 20090508, end: 20090508
  2. SINGULAIR /01362601/ (MONTELUKAST) TABLET [Concomitant]
  3. SEROQUEL [Concomitant]
  4. CELEXA /00582602/ (CITALOPRAM HYDROBROMIDE) [Concomitant]

REACTIONS (8)
  - ABNORMAL BEHAVIOUR [None]
  - BLINDNESS TRANSIENT [None]
  - DIZZINESS [None]
  - EUPHORIC MOOD [None]
  - HEADACHE [None]
  - LOGORRHOEA [None]
  - PAIN [None]
  - TIC [None]
